FAERS Safety Report 13899124 (Version 2)
Quarter: 2017Q3

REPORT INFORMATION
  Report Type: Spontaneous
  Country: US (occurrence: US)
  Receive Date: 20170823
  Receipt Date: 20170929
  Transmission Date: 20171127
  Serious: No
  Sender: FDA-Public Use
  Company Number: US-JAZZ-2017-US-007652

PATIENT
  Sex: Female

DRUGS (31)
  1. COLACE [Concomitant]
     Active Substance: DOCUSATE SODIUM
  2. NORCO [Concomitant]
     Active Substance: ACETAMINOPHEN\HYDROCODONE BITARTRATE
  3. DEXEDRINE [Concomitant]
     Active Substance: DEXTROAMPHETAMINE SULFATE
  4. NODOZ [Concomitant]
     Active Substance: CAFFEINE
  5. DICLOFENAC SODIUM. [Concomitant]
     Active Substance: DICLOFENAC SODIUM
  6. CELEBREX [Concomitant]
     Active Substance: CELECOXIB
  7. ACETAZOLAMIDE. [Concomitant]
     Active Substance: ACETAZOLAMIDE
  8. LORAZEPAM. [Concomitant]
     Active Substance: LORAZEPAM
  9. BENGAY                             /00735901/ [Concomitant]
  10. TURMERIC                           /01079601/ [Concomitant]
     Active Substance: HERBALS\TURMERIC
  11. PENICILLIN                         /00000901/ [Concomitant]
     Active Substance: PENICILLIN G
  12. HYDROCODONE BITARTRATE AND ACETAMINOPHEN [Concomitant]
     Active Substance: ACETAMINOPHEN\HYDROCODONE BITARTRATE
  13. OMEPRAZOLE. [Concomitant]
     Active Substance: OMEPRAZOLE
  14. XYREM [Suspect]
     Active Substance: SODIUM OXYBATE
     Dosage: 3G, BID
     Route: 048
     Dates: start: 201608
  15. LIDOCAINE. [Concomitant]
     Active Substance: LIDOCAINE
  16. CYCLOBENZAPRINE. [Concomitant]
     Active Substance: CYCLOBENZAPRINE
  17. SALONPAS                           /00735901/ [Concomitant]
     Active Substance: MENTHOL\METHYL SALICYLATE
  18. XYREM [Suspect]
     Active Substance: SODIUM OXYBATE
     Indication: CATAPLEXY
     Dosage: DOSE ADJUSTMENTS
     Route: 048
     Dates: start: 201601, end: 201608
  19. LYRICA [Concomitant]
     Active Substance: PREGABALIN
  20. DULOXETINE HCL [Concomitant]
     Active Substance: DULOXETINE HYDROCHLORIDE
  21. TROKENDI [Concomitant]
     Active Substance: TOPIRAMATE
  22. XYREM [Suspect]
     Active Substance: SODIUM OXYBATE
     Indication: NARCOLEPSY
     Dosage: 2.25G, BID
     Route: 048
     Dates: start: 201601, end: 201601
  23. MODAFINIL. [Concomitant]
     Active Substance: MODAFINIL
  24. ZYRTEC [Concomitant]
     Active Substance: CETIRIZINE HYDROCHLORIDE
  25. BENADRYL ALLERGY [Concomitant]
     Active Substance: DIPHENHYDRAMINE HYDROCHLORIDE
  26. METOPROLOL TARTRATE. [Concomitant]
     Active Substance: METOPROLOL TARTRATE
  27. FAMOTIDINE. [Concomitant]
     Active Substance: FAMOTIDINE
  28. TYLENOL EXTRA STRENGTH [Concomitant]
     Active Substance: ACETAMINOPHEN
  29. FLONASE                            /00908302/ [Concomitant]
     Active Substance: MOMETASONE FUROATE
  30. AUGMENTIN [Concomitant]
     Active Substance: AMOXICILLIN\CLAVULANATE POTASSIUM
  31. SAVELLA [Concomitant]
     Active Substance: MILNACIPRAN HYDROCHLORIDE

REACTIONS (2)
  - Blood potassium decreased [Not Recovered/Not Resolved]
  - Electrolyte imbalance [Not Recovered/Not Resolved]
